FAERS Safety Report 6779830-7 (Version None)
Quarter: 2010Q2

REPORT INFORMATION
  Report Type: 
  Country: None (occurrence: None)
  Receive Date: 20100618
  Receipt Date: 20100607
  Transmission Date: 20101027
  Serious: Yes (Death, Hospitalization, Other)
  Sender: FDA-Public Use
  Company Number: US-PFIZER INC-2004052118

PATIENT
  Sex: Male

DRUGS (9)
  1. NEURONTIN [Suspect]
     Indication: DEPRESSION
     Dosage: UNK
     Route: 048
     Dates: start: 20001101, end: 20020723
  2. NEURONTIN [Suspect]
     Indication: SLEEP DISORDER
  3. NEURONTIN [Suspect]
     Indication: MOOD ALTERED
  4. NEURONTIN [Suspect]
     Indication: PAIN
  5. EFFEXOR XR [Concomitant]
     Indication: DEPRESSION
     Dosage: UNK
  6. EFFEXOR XR [Concomitant]
     Indication: ATTENTION DEFICIT/HYPERACTIVITY DISORDER
  7. RISPERDAL [Concomitant]
     Indication: PSYCHOTIC DISORDER
     Dosage: UNK
  8. CELEXA [Concomitant]
     Dosage: UNK
  9. BUPROPION HCL [Concomitant]
     Dosage: UNK

REACTIONS (10)
  - ANOXIC ENCEPHALOPATHY [None]
  - ANXIETY [None]
  - CARDIAC ARREST [None]
  - COMPLETED SUICIDE [None]
  - PAIN [None]
  - PNEUMOMEDIASTINUM [None]
  - PNEUMONIA ASPIRATION [None]
  - RESPIRATORY FAILURE [None]
  - SUICIDAL IDEATION [None]
  - VICTIM OF CRIME [None]
